FAERS Safety Report 4686425-8 (Version None)
Quarter: 2005Q2

REPORT INFORMATION
  Report Type: 
  Country: None (occurrence: None)
  Receive Date: 20050606
  Receipt Date: 20050525
  Transmission Date: 20051028
  Serious: Yes (Other)
  Sender: FDA-Public Use
  Company Number: 2005082004

PATIENT
  Age: 64 Year
  Sex: Female
  Weight: 52.6 kg

DRUGS (5)
  1. CABERGOLINE [Suspect]
     Indication: PARKINSON'S DISEASE
     Dosage: (6 MG), ORAL
     Route: 048
     Dates: start: 20030201, end: 20050401
  2. CO-CARELDOPA (CARBIDOPA, LEVODOPA) [Concomitant]
  3. CO-BENELDOPA (BENSERAZIDE  HYDROCHLORIDE, LEVODOPA) [Concomitant]
  4. FUROSEMIDE [Concomitant]
  5. RAMIPRIL [Concomitant]

REACTIONS (3)
  - AORTIC VALVE INCOMPETENCE [None]
  - MITRAL VALVE INCOMPETENCE [None]
  - PULMONARY OEDEMA [None]
